FAERS Safety Report 21801791 (Version 1)
Quarter: 2022Q4

REPORT INFORMATION
  Report Type: Spontaneous
  Country: JP (occurrence: JP)
  Receive Date: 20221230
  Receipt Date: 20221230
  Transmission Date: 20230113
  Serious: Yes (Hospitalization)
  Sender: FDA-Public Use
  Company Number: JP-ALLERGAN-2242709US

PATIENT
  Sex: Male
  Weight: 70.9 kg

DRUGS (9)
  1. URSODIOL [Suspect]
     Active Substance: URSODIOL
     Indication: Product used for unknown indication
     Dosage: 200 MG, TID
     Route: 048
  2. AMBRISENTAN [Concomitant]
     Active Substance: AMBRISENTAN
  3. ASCORBIC ACID [Concomitant]
     Active Substance: ASCORBIC ACID
  4. AZOSEMIDE [Concomitant]
     Active Substance: AZOSEMIDE
  5. EPLERENONE [Concomitant]
     Active Substance: EPLERENONE
  6. FEBUXOSTAT [Concomitant]
     Active Substance: FEBUXOSTAT
  7. MENATETRENONE [Concomitant]
     Active Substance: MENATETRENONE
  8. RABEPRAZOLE SODIUM [Concomitant]
     Active Substance: RABEPRAZOLE SODIUM
  9. TADALAFIL [Concomitant]
     Active Substance: TADALAFIL

REACTIONS (1)
  - Acute kidney injury [Unknown]
